FAERS Safety Report 19605226 (Version 8)
Quarter: 2025Q4

REPORT INFORMATION
  Report Type: Report from Study
  Country: US (occurrence: US)
  Receive Date: 20210723
  Receipt Date: 20251017
  Transmission Date: 20260117
  Serious: Yes (Other)
  Sender: TAKEDA
  Company Number: US-SHIRE-US202030770

PATIENT
  Age: 54 Year
  Sex: Female

DRUGS (5)
  1. HUMAN IMMUNOGLOBULIN G [Suspect]
     Active Substance: HUMAN IMMUNOGLOBULIN G
     Indication: Immunodeficiency common variable
     Dosage: 25 GRAM, Q3WEEKS
  2. HUMAN IMMUNOGLOBULIN G [Suspect]
     Active Substance: HUMAN IMMUNOGLOBULIN G
     Indication: Primary immunodeficiency syndrome
     Dosage: UNK
  3. GAMMAGARD S/D [Suspect]
     Active Substance: HUMAN IMMUNOGLOBULIN G
     Indication: Primary immunodeficiency syndrome
     Dosage: UNK
  4. GAMMAGARD S/D [Suspect]
     Active Substance: HUMAN IMMUNOGLOBULIN G
     Indication: Immunodeficiency common variable
  5. GAMUNEX-C [Suspect]
     Active Substance: HUMAN IMMUNOGLOBULIN G
     Indication: Immunodeficiency common variable
     Dosage: UNK

REACTIONS (13)
  - Clostridium difficile infection [Unknown]
  - Stiff person syndrome [Unknown]
  - Autoimmune disorder [Unknown]
  - Myasthenia gravis [Unknown]
  - Pain in jaw [Unknown]
  - Urinary tract infection [Unknown]
  - Abdominal adhesions [Recovering/Resolving]
  - Blood pressure increased [Unknown]
  - Sleep disorder [Unknown]
  - Dysphagia [Unknown]
  - Muscle disorder [Unknown]
  - Headache [Unknown]
  - Wrong product administered [Unknown]

NARRATIVE: CASE EVENT DATE: 20240501
